FAERS Safety Report 8446181-4 (Version None)
Quarter: 2012Q2

REPORT INFORMATION
  Report Type: 
  Country: None (occurrence: None)
  Receive Date: 20120323
  Receipt Date: 20110810
  Transmission Date: 20120825
  Serious: Yes (Other)
  Sender: FDA-Public Use
  Company Number: 163-21880-11081481

PATIENT
  Sex: Female
  Weight: 72.5755 kg

DRUGS (4)
  1. REVLIMID [Suspect]
     Indication: MULTIPLE MYELOMA
     Dosage: 25 MG, 1 IN 1 D, PO; 10-25MG, DAILY, PO; 15-10MG, DAILY, PO; 10 MG, 1 IN 1 D, PO
     Route: 048
     Dates: start: 20110201
  2. REVLIMID [Suspect]
     Indication: MULTIPLE MYELOMA
     Dosage: 25 MG, 1 IN 1 D, PO; 10-25MG, DAILY, PO; 15-10MG, DAILY, PO; 10 MG, 1 IN 1 D, PO
     Route: 048
     Dates: start: 20070201
  3. REVLIMID [Suspect]
     Indication: MULTIPLE MYELOMA
     Dosage: 25 MG, 1 IN 1 D, PO; 10-25MG, DAILY, PO; 15-10MG, DAILY, PO; 10 MG, 1 IN 1 D, PO
     Route: 048
     Dates: start: 20070601
  4. REVLIMID [Suspect]
     Indication: MULTIPLE MYELOMA
     Dosage: 25 MG, 1 IN 1 D, PO; 10-25MG, DAILY, PO; 15-10MG, DAILY, PO; 10 MG, 1 IN 1 D, PO
     Route: 048
     Dates: start: 20070101

REACTIONS (1)
  - BLINDNESS [None]
